FAERS Safety Report 6230532-5 (Version None)
Quarter: 2009Q2

REPORT INFORMATION
  Report Type: 
  Country: None (occurrence: None)
  Receive Date: 20090615
  Receipt Date: 20090611
  Transmission Date: 20091009
  Serious: No
  Sender: FDA-Public Use
  Company Number: US-ABBOTT-09P-163-0579472-00

PATIENT
  Sex: Male
  Weight: 118.95 kg

DRUGS (7)
  1. TRILIPIX [Suspect]
     Indication: BLOOD CHOLESTEROL INCREASED
     Dates: start: 20090501, end: 20090610
  2. LIPITOR [Concomitant]
     Indication: BLOOD CHOLESTEROL INCREASED
     Route: 048
  3. NORVASC [Concomitant]
     Indication: HYPERTENSION
     Route: 048
  4. ADVAIR HFA [Concomitant]
     Indication: ASTHMA
     Route: 055
  5. ALBUTEROL [Concomitant]
     Indication: ASTHMA
     Route: 055
  6. TYLENOL (CAPLET) [Concomitant]
     Indication: ARTHRITIS
  7. RHINOCORT [Concomitant]
     Indication: DRUG USE FOR UNKNOWN INDICATION

REACTIONS (1)
  - PARAESTHESIA [None]
